FAERS Safety Report 7475248-2 (Version None)
Quarter: 2011Q2

REPORT INFORMATION
  Report Type: 
  Country: None (occurrence: None)
  Receive Date: 20110512
  Receipt Date: 20110427
  Transmission Date: 20111010
  Serious: No
  Sender: FDA-Public Use
  Company Number: US-B.I. PHARMACEUTICALS,INC./RIDGEFIELD-2011-BP-11949BP

PATIENT
  Sex: Male

DRUGS (9)
  1. FINASTERIDE [Concomitant]
     Indication: PROSTATIC DISORDER
     Route: 048
  2. PRADAXA [Suspect]
     Indication: ATRIAL FIBRILLATION
     Dosage: 300 MG
     Route: 048
     Dates: start: 20110420
  3. KLOR-CON [Concomitant]
     Indication: SUPPLEMENTATION THERAPY
     Route: 048
  4. AMLODIPINE BESYLATE [Concomitant]
     Indication: HYPERTENSION
     Route: 048
  5. ONGLYZA [Concomitant]
     Indication: BLOOD GLUCOSE ABNORMAL
     Route: 048
  6. ASPIRIN [Concomitant]
     Indication: PROPHYLAXIS
     Route: 048
  7. FUROSEMIDE [Concomitant]
     Indication: HYPERTENSION
     Route: 048
  8. TAMSULOSIN HCL [Concomitant]
     Indication: PROSTATIC DISORDER
     Route: 048
  9. CITALOPRAM HYDROBROMIDE [Concomitant]
     Indication: DEPRESSION
     Route: 048

REACTIONS (4)
  - DIARRHOEA [None]
  - DYSPHAGIA [None]
  - ODYNOPHAGIA [None]
  - DYSPEPSIA [None]
